FAERS Safety Report 4561365-3 (Version None)
Quarter: 2005Q1

REPORT INFORMATION
  Report Type: 
  Country: None (occurrence: None)
  Receive Date: 20050124
  Receipt Date: 20050111
  Transmission Date: 20050727
  Serious: Yes (Death, Other)
  Sender: FDA-Public Use
  Company Number: 2004085186

PATIENT
  Age: 75 Year
  Sex: Male
  Weight: 91.173 kg

DRUGS (5)
  1. VIAGRA [Suspect]
     Indication: ERECTILE DYSFUNCTION
     Dosage: ORAL
     Route: 048
     Dates: start: 20041025, end: 20041025
  2. DILTIAZEM [Concomitant]
  3. OLMESARTAN MEDOXOMIL (OLMESARTAN MEDOXOMIL) [Concomitant]
  4. TAMSULOSIN HYDROCHLORIDE (TAMSULOSIN HYDROCHLORIDE) [Concomitant]
  5. ASPIRIN [Concomitant]

REACTIONS (10)
  - AGONAL RHYTHM [None]
  - ATRIAL FIBRILLATION [None]
  - CARDIAC ARREST [None]
  - CIRCULATORY COLLAPSE [None]
  - MYOCARDIAL INFARCTION [None]
  - PULSE ABSENT [None]
  - PUPIL FIXED [None]
  - RESPIRATORY ARREST [None]
  - SUDDEN DEATH [None]
  - UNRESPONSIVE TO PAIN STIMULI [None]
